FAERS Safety Report 12253836 (Version 3)
Quarter: 2019Q4

REPORT INFORMATION
  Report Type: Spontaneous
  Country: FR (occurrence: FR)
  Receive Date: 20160411
  Receipt Date: 20191113
  Transmission Date: 20200122
  Serious: Yes (Congenital Anomaly, Other)
  Sender: FDA-Public Use
  Company Number: FR-ABBVIE-16P-056-1600913-00

PATIENT
  Sex: Male

DRUGS (2)
  1. DEPAKINE [Suspect]
     Active Substance: VALPROATE SODIUM
     Indication: MATERNAL EXPOSURE TIMING UNSPECIFIED
     Route: 064
  2. DEPAKINE CHRONO [Suspect]
     Active Substance: VALPROATE SODIUM
     Indication: EPILEPSY
     Route: 064
     Dates: start: 200306, end: 20040405

REACTIONS (59)
  - Femoral pulse decreased [Unknown]
  - Ventricular septal defect [Unknown]
  - Gastritis [Unknown]
  - Fine motor skill dysfunction [Unknown]
  - Gastrooesophageal reflux disease [Unknown]
  - Emotional disorder [Unknown]
  - Learning disorder [Unknown]
  - Dyspraxia [Unknown]
  - Bronchial hyperreactivity [Unknown]
  - Asthma [Unknown]
  - Rib deformity [Unknown]
  - Pectus excavatum [Unknown]
  - Pharyngeal disorder [Unknown]
  - Bradyphrenia [Unknown]
  - Shoulder deformity [Unknown]
  - Enuresis [Unknown]
  - Heart disease congenital [Unknown]
  - Urinary tract infection bacterial [Unknown]
  - Lower respiratory tract congestion [Unknown]
  - Strabismus [Unknown]
  - Congenital genital malformation [Unknown]
  - Limb malformation [Unknown]
  - Foetal exposure during pregnancy [Unknown]
  - Dysmorphism [Unknown]
  - Atelectasis [Unknown]
  - Congenital knee deformity [Unknown]
  - Balance disorder [Unknown]
  - Visuospatial deficit [Unknown]
  - Myopia [Unknown]
  - Respiratory disorder [Unknown]
  - Executive dysfunction [Unknown]
  - Dysgraphia [Unknown]
  - Aorta hypoplasia [Unknown]
  - Poor feeding infant [Unknown]
  - Lip disorder [Unknown]
  - Camptodactyly congenital [Unknown]
  - Talipes [Unknown]
  - Middle ear disorder [Unknown]
  - Autism spectrum disorder [Not Recovered/Not Resolved]
  - Spine malformation [Unknown]
  - Foot deformity [Unknown]
  - Laryngeal oedema [Unknown]
  - Tooth hypoplasia [Unknown]
  - Pelvic deformity [Unknown]
  - Adenoidal hypertrophy [Unknown]
  - Psychomotor skills impaired [Unknown]
  - Scoliosis [Unknown]
  - Congenital hand malformation [Unknown]
  - Sensorimotor disorder [Unknown]
  - Hypertonia [Unknown]
  - Skull malformation [Unknown]
  - Psychomotor retardation [Unknown]
  - Apraxia [Unknown]
  - Disturbance in attention [Unknown]
  - Right ventricular hypertrophy [Unknown]
  - Language disorder [Unknown]
  - Sensory disturbance [Unknown]
  - Ventricular dysfunction [Unknown]
  - Synostosis [Unknown]

NARRATIVE: CASE EVENT DATE: 2004
